FAERS Safety Report 8225117-5 (Version None)
Quarter: 2012Q1

REPORT INFORMATION
  Report Type: 
  Country: None (occurrence: None)
  Receive Date: 20120321
  Receipt Date: 20120313
  Transmission Date: 20120608
  Serious: Yes (Other)
  Sender: FDA-Public Use
  Company Number: JP-JNJFOC-20120302117

PATIENT
  Age: 88 Year
  Sex: Male

DRUGS (17)
  1. TRAMADOL HYDROCHLORIDE AND ACETAMINOPHEN [Suspect]
     Indication: POST HERPETIC NEURALGIA
     Dosage: 1 PER 1 DAY
     Route: 048
     Dates: end: 20120302
  2. TRAMADOL HYDROCHLORIDE AND ACETAMINOPHEN [Suspect]
     Indication: PAIN
     Dosage: 1 PER 1 DAY
     Route: 048
     Dates: end: 20120302
  3. LYRICA [Suspect]
     Dosage: ONCE A DAY
     Route: 048
  4. CANDESARTAN CILEXETIL [Concomitant]
     Dosage: ONCE A DAY
     Route: 048
  5. ARICEPT [Concomitant]
     Dosage: ONCE A DAY
     Route: 048
  6. ATELEC [Concomitant]
     Dosage: ONCE A DAY
     Route: 048
  7. TRAMADOL HYDROCHLORIDE AND ACETAMINOPHEN [Suspect]
     Route: 048
  8. ZOLOFT [Concomitant]
     Dosage: ONCE A DAY
     Route: 048
  9. EPLERENONE [Concomitant]
     Dosage: ONCE A DAY
     Route: 048
  10. BENFOTIAMINE [Concomitant]
     Route: 065
  11. OPALMON [Concomitant]
     Dosage: ONCE A DAY
     Route: 048
  12. FAMOTIDINE [Concomitant]
     Route: 048
  13. LYRICA [Suspect]
     Indication: PAIN
     Dosage: ONCE A DAY
     Route: 048
     Dates: end: 20120302
  14. TRAMADOL HYDROCHLORIDE AND ACETAMINOPHEN [Suspect]
     Route: 048
  15. PLAVIX [Concomitant]
     Route: 048
  16. TAMSULOSIN HCL [Concomitant]
     Route: 048
  17. MAGMITT [Concomitant]
     Route: 048

REACTIONS (5)
  - ATRIOVENTRICULAR BLOCK [None]
  - VOMITING [None]
  - DECREASED APPETITE [None]
  - BRADYCARDIA [None]
  - NAUSEA [None]
